FAERS Safety Report 24332146 (Version 1)
Quarter: 2024Q3

REPORT INFORMATION
  Report Type: Spontaneous
  Country: TR (occurrence: TR)
  Receive Date: 20240918
  Receipt Date: 20240918
  Transmission Date: 20241016
  Serious: Yes (Hospitalization)
  Sender: ACCORD
  Company Number: TR-MLMSERVICE-20240830-PI177697-00218-1

PATIENT
  Age: 66 Year
  Sex: Male

DRUGS (1)
  1. METHOTREXATE [Suspect]
     Active Substance: METHOTREXATE
     Indication: Psoriatic arthropathy

REACTIONS (7)
  - Renal impairment [Unknown]
  - Bone marrow failure [Unknown]
  - Pancytopenia [Unknown]
  - Treatment noncompliance [Unknown]
  - Leukoplakia [Unknown]
  - Pemphigoid [Unknown]
  - Aphthous ulcer [Unknown]
